FAERS Safety Report 17294843 (Version 1)
Quarter: 2020Q1

REPORT INFORMATION
  Report Type: Spontaneous
  Country: US (occurrence: US)
  Receive Date: 20200121
  Receipt Date: 20200121
  Transmission Date: 20200409
  Serious: Yes (Other)
  Sender: FDA-Public Use
  Company Number: US-PFIZER INC-2020023430

PATIENT
  Age: 47 Year
  Sex: Female
  Weight: 91 kg

DRUGS (19)
  1. ISOFLURANE. [Suspect]
     Active Substance: ISOFLURANE
     Indication: MAINTENANCE OF ANAESTHESIA
     Dosage: UNK
  2. LIDOCAINE HYDROCHLORIDE. [Concomitant]
     Active Substance: LIDOCAINE HYDROCHLORIDE
     Indication: ANAESTHESIA
     Dosage: 100 MG, UNK(RAPID-SEQUENCE INDUCTION)
     Route: 042
  3. CITRIC ACID [Concomitant]
     Active Substance: CITRIC ACID MONOHYDRATE
     Dosage: UNK (SOLUTION)
  4. CEFOXITIN SODIUM [Concomitant]
     Active Substance: CEFOXITIN SODIUM
     Dosage: 1 G, UNK, (AS THE SODIUM SALT)
     Route: 042
  5. NIFEDIPINE. [Suspect]
     Active Substance: NIFEDIPINE
     Dosage: UNK (DOSAGES UNKNOWN)
  6. FOLIC ACID. [Concomitant]
     Active Substance: FOLIC ACID
     Dosage: UNK (DOSAGES UNKNOWN)
  7. DROPERIDOL. [Concomitant]
     Active Substance: DROPERIDOL
     Dosage: 1.25 MG, UNK, ADMINISTERED 55 MINUTES AFTER INDUCTION
     Route: 042
  8. SODIUM CITRATE. [Concomitant]
     Active Substance: SODIUM CITRATE
     Dosage: UNK
     Route: 048
  9. FENTANYL CITRATE. [Concomitant]
     Active Substance: FENTANYL CITRATE
     Dosage: 100 UG, UNK, (AS THE CITRATE SALT)
     Route: 042
  10. ROCURONIUM BROMIDE. [Suspect]
     Active Substance: ROCURONIUM BROMIDE
     Indication: ANAESTHESIA
     Dosage: 90 MG, UNK
     Route: 042
  11. LEVOTHYROXINE. [Concomitant]
     Active Substance: LEVOTHYROXINE
     Indication: HYPOTHYROIDISM
     Dosage: UNK (DOSAGES UNKNOWN)
  12. FAMOTIDINE. [Concomitant]
     Active Substance: FAMOTIDINE
     Dosage: 20 MG, UNK
     Route: 042
  13. OXYGEN. [Concomitant]
     Active Substance: OXYGEN
     Indication: MAINTENANCE OF ANAESTHESIA
     Dosage: UNK
  14. METOCLOPRAMIDE HYDROCHLORIDE. [Concomitant]
     Active Substance: METOCLOPRAMIDE HYDROCHLORIDE
     Dosage: 10 MG, UNK (AS THE HYDROCHLORIDE SALT)
     Route: 042
  15. MIDAZOLAM HYDROCHLORIDE. [Concomitant]
     Active Substance: MIDAZOLAM HYDROCHLORIDE
     Indication: SEDATION
     Dosage: 2 MG, UNK, (AS THE HYDROCHLORIDE SALT)
     Route: 042
  16. THIOPENTAL SODIUM. [Concomitant]
     Active Substance: THIOPENTAL SODIUM
     Indication: ANAESTHESIA
     Dosage: 360 MG, UNK
     Route: 042
  17. ISOPHANE INSULIN [Concomitant]
     Active Substance: INSULIN NOS
     Indication: TYPE 1 DIABETES MELLITUS
     Dosage: UNK (DOSAGES UNKNOWN)
  18. CALCIUM [Concomitant]
     Active Substance: CALCIUM
     Dosage: UNK (DOSAGES UNKNOWN)
  19. NITROUS OXIDE. [Concomitant]
     Active Substance: NITROUS OXIDE
     Indication: MAINTENANCE OF ANAESTHESIA
     Dosage: UNK

REACTIONS (2)
  - Neuromuscular blockade [Recovered/Resolved]
  - Paralysis [Recovered/Resolved]
